FAERS Safety Report 9324108 (Version 2)
Quarter: 2013Q3

REPORT INFORMATION
  Report Type: Not Available
  Country: FR (occurrence: FR)
  Receive Date: 20130603
  Receipt Date: 20130716
  Transmission Date: 20140515
  Serious: Yes (Hospitalization)
  Sender: FDA-Public Use
  Company Number: FR-NAPPMUNDI-GBR-2013-0014048

PATIENT
  Age: 40 Year
  Sex: Female

DRUGS (5)
  1. OXYNORM SOLUTION INJECTABLE [Suspect]
     Indication: POST PROCEDURAL COMPLICATION
     Dosage: UNK
     Route: 042
     Dates: start: 20120117
  2. ROCEPHINE [Suspect]
     Indication: POST PROCEDURAL COMPLICATION
     Dosage: UNK
     Dates: start: 20120107, end: 20120128
  3. ZYVOXID [Suspect]
     Indication: POST PROCEDURAL COMPLICATION
     Dosage: UNK
     Dates: start: 20120106, end: 20120203
  4. LAROXYL [Suspect]
     Indication: POST PROCEDURAL COMPLICATION
     Dosage: UNK
     Dates: start: 20120201
  5. DAFALGAN [Suspect]
     Indication: POST PROCEDURAL COMPLICATION
     Dosage: UNK
     Dates: start: 201112

REACTIONS (1)
  - Meningitis aseptic [Recovered/Resolved]
